FAERS Safety Report 5165092-3 (Version None)
Quarter: 2006Q4

REPORT INFORMATION
  Report Type: 
  Country: None (occurrence: None)
  Receive Date: 20061124
  Receipt Date: 20061113
  Transmission Date: 20070319
  Serious: Yes (Hospitalization, Other)
  Sender: FDA-Public Use
  Company Number: 2006108962

PATIENT
  Age: 53 Year
  Sex: Female

DRUGS (8)
  1. NORVASC [Suspect]
     Indication: HYPERTENSION
     Dosage: 5 MG (5 MG, 1 IN 1 D), ORAL
     Route: 048
     Dates: start: 20060718, end: 20060906
  2. LEFTOSE (LYSOZYME) [Suspect]
     Indication: NASOPHARYNGITIS
     Dosage: 3 TABLETS (3 IN 1 D), ORAL
     Route: 048
     Dates: start: 20060424, end: 20060514
  3. LEFTOSE (LYSOZYME) [Suspect]
     Indication: NASOPHARYNGITIS
     Dosage: 3 TABLETS (3 IN 1 D), ORAL
     Route: 048
     Dates: start: 20060603, end: 20060615
  4. LEFTOSE (LYSOZYME) [Suspect]
     Indication: NASOPHARYNGITIS
     Dosage: 3 TABLETS (3 IN 1 D), ORAL
     Route: 048
     Dates: start: 20060707, end: 20060710
  5. LEFTOSE (LYSOZYME) [Suspect]
     Indication: NASOPHARYNGITIS
     Dosage: 3 TABLETS (3 IN 1 D), ORAL
     Route: 048
     Dates: start: 20060722, end: 20060815
  6. LEFTOSE (LYSOZYME) [Suspect]
     Indication: NASOPHARYNGITIS
     Dosage: 3 TABLETS (3 IN 1 D), ORAL
     Route: 048
     Dates: end: 20060906
  7. MUCODYNE (CARBOCISTEINE) [Concomitant]
  8. COLDRIN (CLOFEDANOL HYDROCHLORIDE) [Concomitant]

REACTIONS (6)
  - BLOOD PRESSURE INADEQUATELY CONTROLLED [None]
  - EOSINOPHILIC PNEUMONIA [None]
  - HYPEREOSINOPHILIC SYNDROME [None]
  - IDIOPATHIC PNEUMONIA SYNDROME [None]
  - LUNG CONSOLIDATION [None]
  - PERICARDIAL EFFUSION [None]
